FAERS Safety Report 10143228 (Version 1)
Quarter: 2014Q2

REPORT INFORMATION
  Report Type: Spontaneous
  Country: DK (occurrence: DK)
  Receive Date: 20140430
  Receipt Date: 20140430
  Transmission Date: 20141212
  Serious: Yes (Disabling)
  Sender: FDA-Public Use
  Company Number: DK-ASTRAZENECA-2014SE27996

PATIENT
  Age: 970 Month
  Sex: Male

DRUGS (7)
  1. CASODEX [Suspect]
     Indication: PROSTATE CANCER
     Route: 048
     Dates: start: 20100908, end: 20111115
  2. CASODEX [Suspect]
     Indication: PROSTATE CANCER
     Route: 048
     Dates: start: 20111115, end: 20130403
  3. CARVEDILOL [Concomitant]
     Indication: CARDIAC FAILURE
  4. DIURAL [Concomitant]
     Indication: CARDIAC FAILURE
  5. KALEORID [Concomitant]
     Indication: HYPOKALAEMIA
  6. PAMOL [Concomitant]
     Indication: PAIN
  7. PRADAXA [Concomitant]
     Indication: ATRIAL FIBRILLATION
     Dates: start: 201301

REACTIONS (6)
  - Dyspnoea [Not Recovered/Not Resolved]
  - Cardiomyopathy [Not Recovered/Not Resolved]
  - Ejection fraction decreased [Not Recovered/Not Resolved]
  - Cardiac hypertrophy [Not Recovered/Not Resolved]
  - Cardiac failure chronic [Not Recovered/Not Resolved]
  - Gait disturbance [Not Recovered/Not Resolved]
